FAERS Safety Report 6822699-2 (Version None)
Quarter: 2010Q3

REPORT INFORMATION
  Report Type: 
  Country: None (occurrence: None)
  Receive Date: 20100708
  Receipt Date: 20100701
  Transmission Date: 20110219
  Serious: Yes (Hospitalization)
  Sender: FDA-Public Use
  Company Number: GB-PFIZER INC-2010067263

PATIENT
  Age: 79 Year
  Sex: Male

DRUGS (11)
  1. DOXYCYCLINE HYCLATE [Suspect]
     Indication: LOWER RESPIRATORY TRACT INFECTION
     Dosage: 100 MG, 1X/DAY
     Route: 048
     Dates: start: 20100507, end: 20100520
  2. TRIMETHOPRIM [Suspect]
     Indication: LOWER RESPIRATORY TRACT INFECTION
     Dosage: 200 MG, 2X/DAY
     Route: 048
     Dates: start: 20100510, end: 20100520
  3. WARFARIN SODIUM [Suspect]
     Indication: ATRIAL FIBRILLATION
     Route: 048
  4. ALLOPURINOL [Concomitant]
  5. ATENOLOL [Concomitant]
  6. FELODIPINE [Concomitant]
  7. FUROSEMIDE [Concomitant]
  8. MINOXIDIL [Concomitant]
  9. OMEPRAZOLE [Concomitant]
  10. SERETIDE [Concomitant]
  11. TIOTROPIUM BROMIDE [Concomitant]

REACTIONS (2)
  - CONDITION AGGRAVATED [None]
  - INTERNATIONAL NORMALISED RATIO INCREASED [None]
